FAERS Safety Report 8416911-6 (Version None)
Quarter: 2012Q2

REPORT INFORMATION
  Report Type: 
  Country: None (occurrence: None)
  Receive Date: 20120606
  Receipt Date: 20120529
  Transmission Date: 20120825
  Serious: No
  Sender: FDA-Public Use
  Company Number: US-BAYER-2012-053752

PATIENT
  Age: 46 Year
  Sex: Female
  Weight: 99.773 kg

DRUGS (7)
  1. SEROQUEL [Concomitant]
  2. LYSINE [Concomitant]
  3. SERTRALINE HYDROCHLORIDE [Concomitant]
  4. TOPIRAMATE [Concomitant]
  5. ALEVE (CAPLET) [Suspect]
     Indication: ARTHRALGIA
     Dosage: 2 DF, UNK
     Route: 048
     Dates: start: 20120529
  6. LAMICTAL [Concomitant]
  7. ALPRAZOLAM [Concomitant]

REACTIONS (2)
  - TONGUE ERUPTION [None]
  - TONGUE PRURITUS [None]
